FAERS Safety Report 9349975 (Version 1)
Quarter: 2013Q2

REPORT INFORMATION
  Report Type: Report from Study
  Country: MX (occurrence: MX)
  Receive Date: 20130614
  Receipt Date: 20130614
  Transmission Date: 20140414
  Serious: Yes (Hospitalization, Other)
  Sender: FDA-Public Use
  Company Number: PHHY2011MX68334

PATIENT
  Age: 23 Year
  Sex: Male

DRUGS (3)
  1. TEGRETOL [Suspect]
     Indication: PETIT MAL EPILEPSY
     Dosage: TWO TABLETS (ONE OF 400MG AND ONE OF 200MG)
     Route: 048
  2. TEGRETOL [Suspect]
     Indication: DISTURBANCE IN ATTENTION
     Dosage: ONE TABLET (600MG)
     Route: 048
  3. TEGRETOL [Suspect]
     Indication: OFF LABEL USE

REACTIONS (2)
  - Petit mal epilepsy [Recovered/Resolved]
  - Convulsion [Recovered/Resolved]
